FAERS Safety Report 4594879-0 (Version None)
Quarter: 2005Q1

REPORT INFORMATION
  Report Type: 
  Country: None (occurrence: None)
  Receive Date: 20050224
  Receipt Date: 20030815
  Transmission Date: 20050727
  Serious: Yes (Disabling)
  Sender: FDA-Public Use
  Company Number: GXKR2003US00623

PATIENT
  Age: 44 Year
  Sex: Female

DRUGS (4)
  1. DICLOFENAC (NGX) (DICLOFENAC) [Suspect]
     Indication: EYE LASER SURGERY
  2. CORTICOSTEROIDS (NO INGREDIENTS/SUBSTANCES) [Concomitant]
  3. CIPROFLOXACIN [Concomitant]
  4. OFLOXACIN [Concomitant]

REACTIONS (7)
  - CORNEAL DEPOSITS [None]
  - CORNEAL INFILTRATES [None]
  - CORNEAL OEDEMA [None]
  - CORNEAL SCAR [None]
  - CORNEAL TRANSPLANT [None]
  - CORNEAL ULCER [None]
  - POST PROCEDURAL COMPLICATION [None]
